FAERS Safety Report 24924100 (Version 1)
Quarter: 2025Q1

REPORT INFORMATION
  Report Type: Spontaneous
  Country: IL (occurrence: IL)
  Receive Date: 20250204
  Receipt Date: 20250204
  Transmission Date: 20250409
  Serious: Yes (Death)
  Sender: NOVARTIS
  Company Number: IL-002147023-NVSC2025IL018682

PATIENT
  Sex: Male

DRUGS (1)
  1. PLUVICTO [Suspect]
     Active Substance: LUTETIUM LU-177 VIPIVOTIDE TETRAXETAN
     Indication: Prostate cancer
     Route: 042
     Dates: start: 20241013

REACTIONS (1)
  - Death [Fatal]
